FAERS Safety Report 24244837 (Version 1)
Quarter: 2024Q3

REPORT INFORMATION
  Report Type: Spontaneous
  Country: GB (occurrence: GB)
  Receive Date: 20240823
  Receipt Date: 20240823
  Transmission Date: 20241016
  Serious: Yes (Hospitalization, Other)
  Sender: TEVA
  Company Number: None

PATIENT
  Age: 68 Year
  Sex: Female

DRUGS (13)
  1. LISINOPRIL [Suspect]
     Active Substance: LISINOPRIL
     Route: 065
  2. METHENAMINE [Concomitant]
     Active Substance: METHENAMINE
  3. LANSOPRAZOLE [Concomitant]
     Active Substance: LANSOPRAZOLE
  4. METFORMIN [Concomitant]
     Active Substance: METFORMIN HYDROCHLORIDE
  5. OESTRIOL [Concomitant]
  6. ACETAMINOPHEN [Concomitant]
     Active Substance: ACETAMINOPHEN
  7. ALLOPURINOL [Concomitant]
     Active Substance: ALLOPURINOL
  8. DULAGLUTIDE [Concomitant]
     Active Substance: DULAGLUTIDE
  9. SIMVASTATIN [Concomitant]
     Active Substance: SIMVASTATIN
  10. ENOXAPARIN SODIUM [Concomitant]
     Active Substance: ENOXAPARIN SODIUM
  11. FERROUS FUMARATE [Concomitant]
     Active Substance: FERROUS FUMARATE
  12. HUMALOG [Concomitant]
     Active Substance: INSULIN LISPRO
     Dosage: MIX 25
  13. POTASSIUM BICARBONATE\SODIUM ALGINATE [Concomitant]
     Active Substance: POTASSIUM BICARBONATE\SODIUM ALGINATE

REACTIONS (2)
  - Fall [Unknown]
  - Medication error [Unknown]

NARRATIVE: CASE EVENT DATE: 20240802
